FAERS Safety Report 12624650 (Version 2)
Quarter: 2016Q3

REPORT INFORMATION
  Report Type: Spontaneous
  Country: SE (occurrence: SE)
  Receive Date: 20160805
  Receipt Date: 20160909
  Transmission Date: 20161109
  Serious: Yes (Life-Threatening, Hospitalization, Other)
  Sender: FDA-Public Use
  Company Number: SE-PFIZER INC-2016369377

PATIENT
  Age: 72 Year
  Sex: Female
  Weight: 62 kg

DRUGS (10)
  1. ALVEDON [Concomitant]
     Active Substance: ACETAMINOPHEN
     Dosage: 665 MG, 3X/DAY
     Dates: start: 20160601
  2. FLUNITRAZEPAM [Concomitant]
     Active Substance: FLUNITRAZEPAM
     Dosage: 0.5 MG, 1X/DAY
     Dates: start: 20160530
  3. LAKTULOS [Concomitant]
     Dosage: 20 ML, 1X/DAY
     Dates: start: 20160609
  4. SUTENT [Suspect]
     Active Substance: SUNITINIB MALATE
     Dosage: TOTAL INTAKE OF 7 TABLETS (50 MG X 7) DURING ONE DAY
     Route: 048
     Dates: start: 20160623, end: 20160624
  5. MOVICOL [Concomitant]
     Active Substance: POLYETHYLENE GLYCOL 3350\POTASSIUM CHLORIDE\SODIUM BICARBONATE\SODIUM CHLORIDE
     Dosage: 1-3 BAGS, 1X/DAY
     Dates: start: 20160601
  6. OXYCONTIN [Concomitant]
     Active Substance: OXYCODONE HYDROCHLORIDE
     Dosage: 10 MG, 2X/DAY
     Dates: start: 20160602
  7. SUTENT [Suspect]
     Active Substance: SUNITINIB MALATE
     Indication: RENAL CANCER METASTATIC
     Dosage: 50 MG, 1X/DAY
     Route: 048
     Dates: start: 20160618, end: 20160625
  8. STESOLID [Concomitant]
     Active Substance: DIAZEPAM
     Dosage: 5 MG, AS NEEDED
     Dates: start: 20160601
  9. MINIFOM [Concomitant]
     Dosage: 200 MG, 3X/DAY
  10. OXYNORM [Concomitant]
     Active Substance: OXYCODONE HYDROCHLORIDE
     Dosage: 5 MG, AS NEEDED
     Dates: start: 20160531

REACTIONS (4)
  - General physical health deterioration [Recovering/Resolving]
  - Intentional overdose [Unknown]
  - Hepatic failure [Recovering/Resolving]
  - Confusional state [Recovered/Resolved]

NARRATIVE: CASE EVENT DATE: 20160623
